FAERS Safety Report 23810397 (Version 3)
Quarter: 2025Q2

REPORT INFORMATION
  Report Type: Report from Study
  Country: CA (occurrence: CA)
  Receive Date: 20240502
  Receipt Date: 20250617
  Transmission Date: 20250716
  Serious: Yes (Other)
  Sender: JOHNSON AND JOHNSON
  Company Number: CA-JNJFOC-20220230753

PATIENT
  Age: 33 Year
  Sex: Female
  Weight: 61 kg

DRUGS (3)
  1. REMICADE [Suspect]
     Active Substance: INFLIXIMAB
     Indication: Colitis ulcerative
     Dosage: 400MG WEEK 2, 6, THEN EVERY 6 WEEK?PATIENT REQUIRED RE-INDUCTION OF INFLIXIMAB RECOMBINANT.
     Route: 041
     Dates: start: 20121022
  2. REMICADE [Suspect]
     Active Substance: INFLIXIMAB
     Route: 041
  3. REMICADE [Suspect]
     Active Substance: INFLIXIMAB
     Route: 041

REACTIONS (7)
  - Mycobacterium tuberculosis complex test positive [Unknown]
  - Drug level decreased [Unknown]
  - Inappropriate schedule of product administration [Unknown]
  - Treatment noncompliance [Unknown]
  - Liver function test abnormal [Unknown]
  - Arthralgia [Unknown]
  - Off label use [Unknown]

NARRATIVE: CASE EVENT DATE: 20220203
